FAERS Safety Report 8068217-5 (Version None)
Quarter: 2012Q1

REPORT INFORMATION
  Report Type: 
  Country: None (occurrence: None)
  Receive Date: 20120124
  Receipt Date: 20110921
  Transmission Date: 20120608
  Serious: No
  Sender: FDA-Public Use
  Company Number: US-AMGEN-USASP2011048787

PATIENT
  Age: 81 Year
  Sex: Female

DRUGS (4)
  1. FISH OIL [Concomitant]
  2. PROLIA [Suspect]
     Indication: PRODUCT USED FOR UNKNOWN INDICATION
     Dosage: 60 MG, UNK
  3. OSCAL                              /00108001/ [Concomitant]
     Dosage: UNK UNK, QD
  4. B COMPLEX                          /00212701/ [Concomitant]

REACTIONS (4)
  - MALAISE [None]
  - PAIN IN EXTREMITY [None]
  - CYSTITIS [None]
  - MUSCLE SPASMS [None]
